FAERS Safety Report 24281884 (Version 1)
Quarter: 2024Q3

REPORT INFORMATION
  Report Type: Spontaneous
  Country: US (occurrence: None)
  Receive Date: 20240902
  Receipt Date: 20240902
  Transmission Date: 20241017
  Serious: No
  Sender: Public
  Company Number: None

PATIENT
  Age: 42 Year
  Sex: Male
  Weight: 83.25 kg

DRUGS (6)
  1. DEXTROAMPHET SACCHARAT, AMPHET ASPARTATE, DEXTROAMPHET SULFATE AND AMP [Suspect]
     Active Substance: AMPHETAMINE ASPARTATE\AMPHETAMINE SULFATE\DEXTROAMPHETAMINE SACCHARATE\DEXTROAMPHETAMINE SULFATE
     Indication: Attention deficit hyperactivity disorder
     Dosage: 1 CAPSUOE ORAL ?
     Route: 048
     Dates: start: 20240829, end: 20240902
  2. METOPROLOL [Concomitant]
  3. LISINOPRIL [Concomitant]
  4. ESCITALOPRAM [Concomitant]
  5. PRAVASTATIN [Concomitant]
  6. BUPROPION [Concomitant]

REACTIONS (4)
  - Dizziness [None]
  - Tremor [None]
  - Hyperhidrosis [None]
  - Vision blurred [None]

NARRATIVE: CASE EVENT DATE: 20240901
